FAERS Safety Report 24741801 (Version 1)
Quarter: 2024Q4

REPORT INFORMATION
  Report Type: Spontaneous
  Country: US (occurrence: US)
  Receive Date: 20241217
  Receipt Date: 20241217
  Transmission Date: 20250115
  Serious: Yes (Death)
  Sender: DAIICHI
  Company Number: US-DSJP-DS-2024-114290-USAA

PATIENT
  Age: 53 Year
  Sex: Male

DRUGS (1)
  1. VANFLYTA [Suspect]
     Active Substance: QUIZARTINIB DIHYDROCHLORIDE
     Indication: Product used for unknown indication
     Dosage: 1 DOSAGE FORM, QD
     Route: 048
     Dates: start: 20241115, end: 20241210

REACTIONS (1)
  - Death [Fatal]

NARRATIVE: CASE EVENT DATE: 20241210
